FAERS Safety Report 10172676 (Version 3)
Quarter: 2014Q2

REPORT INFORMATION
  Report Type: Spontaneous
  Country: US (occurrence: US)
  Receive Date: 20140515
  Receipt Date: 20140527
  Transmission Date: 20141212
  Serious: Yes (Hospitalization)
  Sender: FDA-Public Use
  Company Number: US-B.I. PHARMACEUTICALS,INC./RIDGEFIELD-2014-BI-20608BP

PATIENT
  Age: 74 Year
  Sex: Female
  Weight: 82 kg

DRUGS (30)
  1. COMBIVENT [Suspect]
     Indication: ASTHMA
     Dosage: STRENGTH: 20 MCG / 100 MCG;
     Route: 055
  2. CALCIUM [Concomitant]
     Indication: OSTEOPOROSIS PROPHYLAXIS
     Dosage: 1 ANZ
     Route: 048
  3. SENNA [Concomitant]
     Indication: FAECES HARD
     Dosage: 3 ANZ
     Route: 048
  4. SINGULAIR [Concomitant]
     Indication: HYPERSENSITIVITY
     Dosage: 10 MG
     Route: 048
  5. NARCO [Concomitant]
     Indication: PAIN
     Dosage: 1 ANZ
     Route: 048
  6. PREDNISONE [Concomitant]
     Indication: ARTHRITIS
     Dosage: 5 MG
     Route: 048
  7. WELLBUTRIN [Concomitant]
     Indication: DEPRESSION
     Dosage: 150 MG
     Route: 048
  8. LISINOPRIL [Concomitant]
     Indication: HYPERTENSION
     Dosage: 5 MG
     Route: 048
  9. ATARAX [Concomitant]
     Indication: ANXIETY
     Dosage: STRENGTH:12.5MG
     Route: 048
  10. ZYRTEC [Concomitant]
     Indication: HYPERSENSITIVITY
     Route: 048
  11. HYDRALAZINE [Concomitant]
     Indication: HYPERTENSION
     Dosage: 30 MG
     Route: 048
  12. NEURONTIN [Concomitant]
     Indication: ARTHRALGIA
     Dosage: 900 MG
     Route: 048
  13. DUCOSATE [Concomitant]
     Indication: CONSTIPATION
     Dosage: 300 MG
     Route: 048
  14. PRAVASTATIN [Concomitant]
     Indication: BLOOD CHOLESTEROL INCREASED
     Dosage: 40 MG
     Route: 048
  15. NORVASC [Concomitant]
     Indication: HYPERTENSION
     Dosage: 10 MG
     Route: 048
  16. METOPROLOL XL [Concomitant]
     Indication: HYPERTENSION
     Dosage: 25 MG
     Route: 048
  17. FISH OIL [Concomitant]
     Indication: ARTHROPATHY
     Dosage: 1 ANZ
     Route: 048
  18. FISH OIL [Concomitant]
     Indication: ARTHRITIS
  19. TRAZODONE [Concomitant]
     Indication: SLEEP DISORDER
     Dosage: 50 MG
     Route: 048
  20. TRAZODONE [Concomitant]
     Indication: ANXIETY
  21. MAGNESIUM [Concomitant]
     Indication: BLOOD MAGNESIUM DECREASED
     Dosage: 1200 MG
     Route: 048
  22. ADVAIR [Concomitant]
     Indication: CHRONIC OBSTRUCTIVE PULMONARY DISEASE
     Dosage: 1 PUF
     Route: 055
  23. FLONASE [Concomitant]
     Indication: NASAL CONGESTION
     Dosage: 2 ANZ
     Route: 045
  24. DUONEB ALBUTEROL [Concomitant]
     Indication: ASTHMA
     Dosage: 14 MG
     Route: 055
  25. MUSINEX [Concomitant]
     Indication: HYPERSENSITIVITY
     Route: 048
  26. SYNTHROID [Concomitant]
     Indication: HYPOTHYROIDISM
     Dosage: 0.1 MG
     Route: 048
  27. CHLORTHALIDONE [Concomitant]
     Indication: DIURETIC THERAPY
     Dosage: 25 MG
     Route: 048
  28. MELATONIN [Concomitant]
     Indication: SLEEP DISORDER
     Dosage: 10 MG
     Route: 048
  29. SPIRIVA [Concomitant]
     Indication: CHRONIC OBSTRUCTIVE PULMONARY DISEASE
     Dosage: 18 MCG
     Route: 055
  30. TRAMADOL [Concomitant]
     Indication: ARTHRALGIA
     Dosage: 50 MG
     Route: 048

REACTIONS (2)
  - Cerebrovascular accident [Recovered/Resolved with Sequelae]
  - Off label use [Unknown]
